FAERS Safety Report 6144752-1 (Version None)
Quarter: 2009Q2

REPORT INFORMATION
  Report Type: 
  Country: None (occurrence: None)
  Receive Date: 20090406
  Receipt Date: 20090325
  Transmission Date: 20091009
  Serious: Yes (Other)
  Sender: FDA-Public Use
  Company Number: IE-PFIZER INC-2009189870

PATIENT

DRUGS (1)
  1. SUTENT [Suspect]
     Dosage: 12.5 MG, UNK

REACTIONS (1)
  - TRANSIENT ISCHAEMIC ATTACK [None]
